FAERS Safety Report 16083448 (Version 2)
Quarter: 2019Q2

REPORT INFORMATION
  Report Type: Spontaneous
  Country: MX (occurrence: MX)
  Receive Date: 20190318
  Receipt Date: 20190530
  Transmission Date: 20190711
  Serious: Yes (Hospitalization)
  Sender: FDA-Public Use
  Company Number: MX-UCBSA-2019003352

PATIENT
  Age: 35 Year
  Sex: Female
  Weight: 55 kg

DRUGS (2)
  1. CIMZIA [Suspect]
     Active Substance: CERTOLIZUMAB PEGOL
     Dosage: 400 MG, EV 4 WEEKS
     Route: 058
  2. CIMZIA [Suspect]
     Active Substance: CERTOLIZUMAB PEGOL
     Indication: RHEUMATOID ARTHRITIS
     Dosage: 400 MILLIGRAM, EV 2 WEEKS(QOW)
     Dates: start: 20181123

REACTIONS (4)
  - Headache [Not Recovered/Not Resolved]
  - Vertigo [Not Recovered/Not Resolved]
  - Drug ineffective [Unknown]
  - Gingival bleeding [Recovered/Resolved]

NARRATIVE: CASE EVENT DATE: 201901
